FAERS Safety Report 7020807-4 (Version None)
Quarter: 2010Q3

REPORT INFORMATION
  Report Type: 
  Country: None (occurrence: None)
  Receive Date: 20100929
  Receipt Date: 20100920
  Transmission Date: 20110219
  Serious: Yes (Hospitalization)
  Sender: FDA-Public Use
  Company Number: US-MERCK-1009USA04010

PATIENT
  Age: 82 Year
  Sex: Female

DRUGS (2)
  1. FOSAMAX [Suspect]
     Indication: OSTEOPOROSIS
     Route: 048
     Dates: start: 20000101
  2. ALENDRONATE SODIUM [Concomitant]
     Indication: OSTEOPOROSIS
     Route: 048

REACTIONS (1)
  - FEMUR FRACTURE [None]
